FAERS Safety Report 4886387-4 (Version None)
Quarter: 2006Q1

REPORT INFORMATION
  Report Type: 
  Country: None (occurrence: None)
  Receive Date: 20060118
  Receipt Date: 20060105
  Transmission Date: 20060701
  Serious: Yes (Hospitalization)
  Sender: FDA-Public Use
  Company Number: 2006006161

PATIENT
  Age: 86 Year
  Sex: Male

DRUGS (6)
  1. GENOTROPIN [Suspect]
     Indication: HYPOPITUITARISM
     Dosage: 0.8 MG (0.8 MG, DAILY)
  2. FLOMAX [Concomitant]
  3. TESTOSTERONE (TESTOTERONE) [Concomitant]
  4. HYDROCORTONE (HYDROCORTISONE) [Concomitant]
  5. SYNTHROID [Concomitant]
  6. PLAVIX [Concomitant]

REACTIONS (4)
  - BLADDER NEOPLASM [None]
  - BONE DENSITY DECREASED [None]
  - CORONARY ARTERY OCCLUSION [None]
  - DYSPNOEA [None]
